FAERS Safety Report 26127118 (Version 1)
Quarter: 2025Q4

REPORT INFORMATION
  Report Type: Spontaneous
  Country: US (occurrence: US)
  Receive Date: 20251205
  Receipt Date: 20251205
  Transmission Date: 20260117
  Serious: No
  Sender: Harrow Health
  Company Number: US-HARROW-HAR-2025-US-01326

PATIENT
  Age: 73 Year
  Sex: Female

DRUGS (1)
  1. VEVYE [Suspect]
     Active Substance: CYCLOSPORINE
     Dosage: ONE DROP IN BOTH EYES IN MORNING AND EVENING
     Route: 047
     Dates: start: 20251014

REACTIONS (2)
  - Sinus headache [Recovered/Resolved]
  - Product delivery mechanism issue [Unknown]

NARRATIVE: CASE EVENT DATE: 20251016
